APPROVED DRUG PRODUCT: TAMIFLU
Active Ingredient: OSELTAMIVIR PHOSPHATE
Strength: EQ 75MG BASE
Dosage Form/Route: CAPSULE;ORAL
Application: N021087 | Product #001 | TE Code: AB
Applicant: HOFFMANN LA ROCHE INC
Approved: Oct 27, 1999 | RLD: Yes | RS: Yes | Type: RX